FAERS Safety Report 9271768 (Version 1)
Quarter: 2013Q2

REPORT INFORMATION
  Report Type: Spontaneous
  Country: US (occurrence: US)
  Receive Date: 20130506
  Receipt Date: 20130506
  Transmission Date: 20140414
  Serious: No
  Sender: FDA-Public Use
  Company Number: US-BAYER-2013-055777

PATIENT
  Age: 77 Year
  Sex: Female
  Weight: 77.1 kg

DRUGS (7)
  1. ALEVE CAPLET [Suspect]
     Indication: BACK PAIN
     Dosage: UNK UNK, PRN
     Route: 048
     Dates: start: 2012
  2. ALEVE CAPLET [Suspect]
     Indication: BACK PAIN
     Dosage: 2 DF, BID
     Route: 048
     Dates: start: 201210
  3. OXYBUTYNIN [Concomitant]
  4. LOSARTAN [Concomitant]
  5. AMLODIPINE [Concomitant]
  6. HYDROCHLORZIDE [Concomitant]
  7. BAYER ASPIRIN REGIMEN ADULT LOW STRENGTH [Concomitant]

REACTIONS (1)
  - Incorrect dose administered [None]
